FAERS Safety Report 11001179 (Version 1)
Quarter: 2015Q2

REPORT INFORMATION
  Report Type: Spontaneous
  Country: US (occurrence: US)
  Receive Date: 20150408
  Receipt Date: 20150408
  Transmission Date: 20150821
  Serious: No
  Sender: FDA-Public Use
  Company Number: US-SA-2014SA177698

PATIENT
  Sex: Female

DRUGS (5)
  1. MARINOL [Concomitant]
     Active Substance: DRONABINOL
  2. ALLEGRA [Suspect]
     Active Substance: FEXOFENADINE HYDROCHLORIDE
     Route: 048
     Dates: start: 20141218
  3. PREDNISONE. [Concomitant]
     Active Substance: PREDNISONE
  4. THYROID THERAPY [Concomitant]
     Active Substance: UNSPECIFIED INGREDIENT
  5. AMBIEN [Concomitant]
     Active Substance: ZOLPIDEM TARTRATE
     Dates: end: 20141215

REACTIONS (6)
  - Gastritis [Not Recovered/Not Resolved]
  - Extra dose administered [Unknown]
  - Drug prescribing error [Unknown]
  - Abdominal discomfort [Not Recovered/Not Resolved]
  - Malaise [Not Recovered/Not Resolved]
  - Nausea [Not Recovered/Not Resolved]
